FAERS Safety Report 20606835 (Version 2)
Quarter: 2022Q3

REPORT INFORMATION
  Report Type: Spontaneous
  Country: GB (occurrence: GB)
  Receive Date: 20220317
  Receipt Date: 20220804
  Transmission Date: 20221026
  Serious: Yes (Other)
  Sender: FDA-Public Use
  Company Number: GB-Actavis-078803

PATIENT
  Sex: Male

DRUGS (6)
  1. DOPAMINE [Suspect]
     Active Substance: DOPAMINE HYDROCHLORIDE
     Indication: Product used for unknown indication
     Dosage: UNKNOWN
     Route: 065
  2. METOCLOPRAMIDE [Suspect]
     Active Substance: METOCLOPRAMIDE
     Indication: Product used for unknown indication
     Dosage: FOR THE LAST 8 YEARS
     Route: 065
     Dates: start: 2014
  3. METOCLOPRAMIDE [Suspect]
     Active Substance: METOCLOPRAMIDE
     Route: 065
     Dates: start: 202112
  4. METOCLOPRAMIDE [Suspect]
     Active Substance: METOCLOPRAMIDE
     Dosage: FOR SEVERAL DAYS
     Route: 065
     Dates: start: 202112
  5. METOCLOPRAMIDE [Suspect]
     Active Substance: METOCLOPRAMIDE
     Dosage: REDUCED FROM 30 MG A DAY TO 15 MG A DAY FOR THE LAST EIGHT TO NINE YEARS
     Route: 065
  6. SEROTONIN [Suspect]
     Active Substance: SEROTONIN
     Indication: Product used for unknown indication
     Dosage: UNKNOWN
     Route: 065

REACTIONS (41)
  - Neuromyopathy [Recovering/Resolving]
  - Erectile dysfunction [Recovering/Resolving]
  - Neurological symptom [Recovering/Resolving]
  - Condition aggravated [Recovering/Resolving]
  - Tremor [Recovering/Resolving]
  - Toxicity to various agents [Recovering/Resolving]
  - Withdrawal syndrome [Unknown]
  - Suicidal ideation [Unknown]
  - Discomfort [Unknown]
  - Nervousness [Unknown]
  - Restless legs syndrome [Unknown]
  - Movement disorder [Unknown]
  - Bruxism [Unknown]
  - Restlessness [Unknown]
  - Somnolence [Unknown]
  - Fatigue [Unknown]
  - Dyspnoea [Unknown]
  - Depressive symptom [Unknown]
  - Crying [Unknown]
  - Confusional state [Unknown]
  - Chills [Unknown]
  - Feeling of body temperature change [Unknown]
  - Dysphagia [Unknown]
  - Asthenia [Unknown]
  - Excessive eye blinking [Unknown]
  - Loss of libido [Unknown]
  - Dizziness [Unknown]
  - Headache [Unknown]
  - Communication disorder [Unknown]
  - Mental disorder [Unknown]
  - Migraine [Unknown]
  - Depressed mood [Unknown]
  - Feeling of despair [Unknown]
  - Emotional distress [Unknown]
  - Balance disorder [Unknown]
  - Gait disturbance [Unknown]
  - Insomnia [Unknown]
  - Agitation [Unknown]
  - Emotional poverty [Unknown]
  - Psychotic disorder [Unknown]
  - Pain [Unknown]

NARRATIVE: CASE EVENT DATE: 20211201
